FAERS Safety Report 19608725 (Version 1)
Quarter: 2021Q3

REPORT INFORMATION
  Report Type: Spontaneous
  Country: US (occurrence: US)
  Receive Date: 20210722
  Receipt Date: 20210722
  Transmission Date: 20211014
  Serious: Yes (Death)
  Sender: FDA-Public Use
  Company Number: None

PATIENT
  Sex: Female

DRUGS (19)
  1. CEPHALEXIN. [Concomitant]
     Active Substance: CEPHALEXIN
  2. CYCLOPHOSPHAMIDE 50MG CAP [Suspect]
     Active Substance: CYCLOPHOSPHAMIDE
     Indication: ANAEMIA
     Dosage: ?          OTHER DOSE:2 CAPS (100MG);?
     Route: 048
     Dates: start: 20210505
  3. FOLIC ACID. [Concomitant]
     Active Substance: FOLIC ACID
  4. MORPHINE SUL [Concomitant]
     Active Substance: MORPHINE SULFATE
  5. SENNA [Concomitant]
     Active Substance: SENNA LEAF\SENNOSIDES\SENNOSIDES A AND B
  6. SMZ/TMP DS [Concomitant]
     Active Substance: SULFAMETHOXAZOLE\TRIMETHOPRIM
  7. ELIQUIS [Concomitant]
     Active Substance: APIXABAN
  8. HYDROMORPHON [Concomitant]
     Active Substance: HYDROMORPHONE
  9. HYOSCYAMINE. [Concomitant]
     Active Substance: HYOSCYAMINE
  10. LORAZEPAM. [Concomitant]
     Active Substance: LORAZEPAM
  11. SIMVASTATIN. [Concomitant]
     Active Substance: SIMVASTATIN
  12. DULOXETINE. [Concomitant]
     Active Substance: DULOXETINE
  13. GABAPENTIN. [Concomitant]
     Active Substance: GABAPENTIN
  14. MELATONIN [Concomitant]
     Active Substance: MELATONIN
  15. PREDNISONE. [Concomitant]
     Active Substance: PREDNISONE
  16. PROCHLORPER [Concomitant]
  17. OMEPRAZOLE. [Concomitant]
     Active Substance: OMEPRAZOLE
  18. CIPROFLOXACIN. [Concomitant]
     Active Substance: CIPROFLOXACIN
  19. DRONABINOL. [Concomitant]
     Active Substance: DRONABINOL

REACTIONS (1)
  - Death [None]
